FAERS Safety Report 6703670-8 (Version None)
Quarter: 2010Q2

REPORT INFORMATION
  Report Type: 
  Country: None (occurrence: None)
  Receive Date: 20100430
  Receipt Date: 20100421
  Transmission Date: 20101027
  Serious: Yes (Hospitalization)
  Sender: FDA-Public Use
  Company Number: PHHY2010US26056

PATIENT
  Sex: Female

DRUGS (1)
  1. FEMARA [Suspect]
     Dosage: 2.5 MG, QD
     Route: 048
     Dates: start: 20090401

REACTIONS (3)
  - GASTROINTESTINAL MOTILITY DISORDER [None]
  - HELICOBACTER INFECTION [None]
  - HYPERSENSITIVITY [None]
